FAERS Safety Report 21085800 (Version 1)
Quarter: 2022Q3

REPORT INFORMATION
  Report Type: Spontaneous
  Country: US (occurrence: US)
  Receive Date: 20220715
  Receipt Date: 20220715
  Transmission Date: 20221027
  Serious: No
  Sender: FDA-Public Use
  Company Number: US-SA-SAC20220714001076

PATIENT
  Age: 43 Year
  Sex: Female

DRUGS (20)
  1. KEVZARA [Suspect]
     Active Substance: SARILUMAB
     Indication: Ankylosing spondylitis
     Dosage: 200 MG QOW
     Route: 058
  2. ALPRAZOLAM [Concomitant]
     Active Substance: ALPRAZOLAM
  3. BUSPIRONE [Concomitant]
     Active Substance: BUSPIRONE HYDROCHLORIDE
  4. CETIRIZINE [Concomitant]
     Active Substance: CETIRIZINE HYDROCHLORIDE
  5. DRONABINOL [Concomitant]
     Active Substance: DRONABINOL
  6. DULOXETINE [Concomitant]
     Active Substance: DULOXETINE
  7. ESZOPICLONE [Concomitant]
     Active Substance: ESZOPICLONE
  8. FOLIC ACID [Concomitant]
     Active Substance: FOLIC ACID
  9. LINZESS [Concomitant]
     Active Substance: LINACLOTIDE
  10. LYRICA [Concomitant]
     Active Substance: PREGABALIN
  11. METHOTREXATE [Concomitant]
     Active Substance: METHOTREXATE
     Dosage: UNK
  12. CYCLOBENZAPRINE [Concomitant]
     Active Substance: CYCLOBENZAPRINE
  13. MONTELUKAST [Concomitant]
     Active Substance: MONTELUKAST SODIUM
  14. NUVARING [Concomitant]
     Active Substance: ETHINYL ESTRADIOL\ETONOGESTREL
  15. OXYCODONE [Concomitant]
     Active Substance: OXYCODONE
  16. PREDNISONE [Concomitant]
     Active Substance: PREDNISONE
  17. ROPINIROLE [Concomitant]
     Active Substance: ROPINIROLE
  18. TRAZODONE [Concomitant]
     Active Substance: TRAZODONE HYDROCHLORIDE
  19. FOLIC ACID;TOCOPHEROL [Concomitant]
  20. METOPROLOL [Concomitant]
     Active Substance: METOPROLOL

REACTIONS (3)
  - Illness [Unknown]
  - Nasal congestion [Unknown]
  - Product dose omission issue [Unknown]
